FAERS Safety Report 7296192-X (Version None)
Quarter: 2011Q1

REPORT INFORMATION
  Report Type: 
  Country: None (occurrence: None)
  Receive Date: 20110216
  Receipt Date: 20110211
  Transmission Date: 20110831
  Serious: Yes (Hospitalization)
  Sender: FDA-Public Use
  Company Number: US-PFIZER INC-2011031569

PATIENT
  Sex: Female
  Weight: 43.5 kg

DRUGS (4)
  1. DEPO-PROVERA [Suspect]
     Indication: OVARIAN CYST
  2. DIAZEPAM [Concomitant]
     Indication: POST-TRAUMATIC STRESS DISORDER
     Dosage: UNK
     Route: 048
  3. DEPO-PROVERA [Suspect]
     Indication: OFF LABEL USE
     Dosage: 150 MG, ONCE
     Route: 030
     Dates: start: 20101029
  4. PERCOCET [Concomitant]
     Indication: PAIN
     Dosage: UNK
     Route: 048

REACTIONS (3)
  - FEELING ABNORMAL [None]
  - MALAISE [None]
  - CEREBROVASCULAR ACCIDENT [None]
